FAERS Safety Report 4639360-5 (Version None)
Quarter: 2005Q2

REPORT INFORMATION
  Report Type: 
  Country: None (occurrence: None)
  Receive Date: 20050418
  Receipt Date: 20050331
  Transmission Date: 20051028
  Serious: Yes (Death, Hospitalization)
  Sender: FDA-Public Use
  Company Number: 2005-BP-03252YA

PATIENT
  Sex: Male

DRUGS (11)
  1. FLOMAX [Suspect]
     Indication: URINE OUTPUT INCREASED
     Dosage: 0.4 MG PO
     Route: 048
     Dates: start: 20041111, end: 20041119
  2. CYCLOSPORINE [Suspect]
     Indication: IMMUNOSUPPRESSION
     Dosage: 550 MG PO
     Route: 048
     Dates: start: 20041001, end: 20041119
  3. SIMVASTATIN [Suspect]
     Indication: HYPERCHOLESTEROLAEMIA
     Dosage: PO
     Route: 048
     Dates: start: 20010901, end: 20041115
  4. CO-TRIMOXAZOLE (CO-TRIMOXAZOLE) [Concomitant]
  5. LANSOPRAZOLE [Concomitant]
  6. PREDNISOLONE [Concomitant]
  7. CALCITRIOL [Concomitant]
  8. ACETAMINOPHEN [Concomitant]
  9. MYCOPHENOLATE SODIUM (MYCOPHENOLATE SODIUM) [Concomitant]
  10. ACETYL SALICYLIC ACID USP BAT [Concomitant]
  11. FUROSEMIDE [Concomitant]

REACTIONS (6)
  - ABASIA [None]
  - ARRHYTHMIA [None]
  - BLOOD POTASSIUM INCREASED [None]
  - CARDIAC ARREST [None]
  - PAIN [None]
  - RHABDOMYOLYSIS [None]
